FAERS Safety Report 8493118-8 (Version None)
Quarter: 2012Q3

REPORT INFORMATION
  Report Type: 
  Country: None (occurrence: None)
  Receive Date: 20120706
  Receipt Date: 20120702
  Transmission Date: 20120928
  Serious: Yes (Death, Hospitalization)
  Sender: FDA-Public Use
  Company Number: GB-JNJFOC-20100705109

PATIENT
  Sex: Male

DRUGS (9)
  1. THIAMINE [Concomitant]
     Indication: ILL-DEFINED DISORDER
     Route: 065
  2. VITAMIN B COMPLEX CAP [Concomitant]
     Indication: ILL-DEFINED DISORDER
     Route: 065
  3. METHADONE HCL [Concomitant]
     Indication: ILL-DEFINED DISORDER
     Route: 065
  4. PROPRANOLOL [Concomitant]
     Indication: ILL-DEFINED DISORDER
     Route: 065
  5. RISPERDAL CONSTA [Suspect]
     Indication: SCHIZOPHRENIA, PARANOID TYPE
     Route: 030
  6. ALCOHOL [Suspect]
     Indication: PRODUCT USED FOR UNKNOWN INDICATION
     Route: 065
  7. PROCYCLIDINE HYDROCHLORIDE 2MG TAB [Concomitant]
     Indication: ILL-DEFINED DISORDER
     Route: 065
  8. RISPERDAL [Suspect]
     Indication: ILL-DEFINED DISORDER
     Route: 048
  9. SERTRALINE HYDROCHLORIDE [Concomitant]
     Indication: ILL-DEFINED DISORDER
     Route: 065

REACTIONS (1)
  - HEPATIC FAILURE [None]
